FAERS Safety Report 8058841-8 (Version None)
Quarter: 2012Q1

REPORT INFORMATION
  Report Type: 
  Country: None (occurrence: None)
  Receive Date: 20120120
  Receipt Date: 20111212
  Transmission Date: 20120608
  Serious: Yes (Hospitalization, Other)
  Sender: FDA-Public Use
  Company Number: US-BRISTOL-MYERS SQUIBB COMPANY-16257743

PATIENT
  Age: 62 Year
  Sex: Male

DRUGS (1)
  1. YERVOY [Suspect]
     Indication: METASTATIC MALIGNANT MELANOMA
     Dosage: NO OF DOSES:2
     Route: 042
     Dates: start: 20111017, end: 20111110

REACTIONS (3)
  - DIARRHOEA [None]
  - ABDOMINAL PAIN [None]
  - DEHYDRATION [None]
